FAERS Safety Report 17911151 (Version 1)
Quarter: 2020Q2

REPORT INFORMATION
  Report Type: Other
  Country: IT (occurrence: IT)
  Receive Date: 20200618
  Receipt Date: 20200618
  Transmission Date: 20200714
  Serious: Yes (Hospitalization, Other)
  Sender: FDA-Public Use
  Company Number: IT-APPCO PHARMA LLC-2086058

PATIENT
  Age: 64 Year
  Sex: Male

DRUGS (1)
  1. METRONIDAZOLE. [Suspect]
     Active Substance: METRONIDAZOLE
     Indication: PRODUCT USED FOR UNKNOWN INDICATION
     Route: 065

REACTIONS (3)
  - Incorrect product administration duration [Recovered/Resolved]
  - Toxic encephalopathy [Recovered/Resolved]
  - Electroencephalogram abnormal [Recovered/Resolved]
